FAERS Safety Report 18923146 (Version 1)
Quarter: 2021Q1

REPORT INFORMATION
  Report Type: Report from Study
  Country: US (occurrence: US)
  Receive Date: 20210222
  Receipt Date: 20210222
  Transmission Date: 20210420
  Serious: Yes (Hospitalization)
  Sender: FDA-Public Use
  Company Number: US-UCBSA-2021006875

PATIENT
  Sex: Female

DRUGS (1)
  1. LACOSAMIDE. [Suspect]
     Active Substance: LACOSAMIDE
     Indication: SEIZURE
     Dosage: 200 MG 1 EVERY MORNING AND 1.5 TABLET IN EVENING, ALSO 50 MG

REACTIONS (3)
  - Intestinal obstruction [Not Recovered/Not Resolved]
  - Product use issue [Unknown]
  - Overdose [Unknown]
